FAERS Safety Report 11071677 (Version 1)
Quarter: 2015Q2

REPORT INFORMATION
  Report Type: Report from Study
  Country: BR (occurrence: BR)
  Receive Date: 20150428
  Receipt Date: 20150428
  Transmission Date: 20150821
  Serious: Yes (Hospitalization)
  Sender: FDA-Public Use
  Company Number: BR-SANOFI-AVENTIS-2012SA088382

PATIENT
  Age: 82 Year
  Sex: Male
  Weight: 80.2 kg

DRUGS (20)
  1. CAPTOPRIL. [Concomitant]
     Active Substance: CAPTOPRIL
     Route: 048
     Dates: start: 20121120, end: 20121120
  2. OMEPRAZOLE. [Concomitant]
     Active Substance: OMEPRAZOLE
     Indication: PROPHYLAXIS
     Route: 042
     Dates: start: 20121127, end: 20121220
  3. FUROSEMIDE. [Concomitant]
     Active Substance: FUROSEMIDE
     Route: 048
     Dates: start: 20121127, end: 20121127
  4. HEPARIN [Concomitant]
     Active Substance: HEPARIN SODIUM
     Indication: PROPHYLAXIS
     Route: 058
     Dates: start: 20121127, end: 20121221
  5. CABAZITAXEL [Suspect]
     Active Substance: CABAZITAXEL
     Indication: PROSTATE CANCER
     Route: 042
     Dates: start: 20121120, end: 20121120
  6. PREDNISONE. [Suspect]
     Active Substance: PREDNISONE
     Indication: PROSTATE CANCER
     Route: 048
     Dates: start: 20121120, end: 20121120
  7. PAMIDRONATE DISODIUM. [Concomitant]
     Active Substance: PAMIDRONATE DISODIUM
     Route: 041
     Dates: start: 20100308
  8. BROMOPRIDE [Concomitant]
     Active Substance: BROMOPRIDE
     Indication: PROPHYLAXIS
     Route: 042
     Dates: start: 20121127, end: 20121221
  9. METHYLDOPA. [Concomitant]
     Active Substance: METHYLDOPA
     Route: 048
     Dates: start: 20121127, end: 20121203
  10. ONDANSETRON [Concomitant]
     Active Substance: ONDANSETRON
     Indication: PROPHYLAXIS
     Route: 042
     Dates: start: 20121130, end: 20121204
  11. DOXAZOSIN MESILATE [Concomitant]
     Active Substance: DOXAZOSIN MESYLATE
     Route: 048
     Dates: start: 20121129, end: 20121221
  12. FLORATIL [Concomitant]
     Indication: PROPHYLAXIS
     Route: 048
     Dates: start: 20121130, end: 20121201
  13. RIVOTRIL [Concomitant]
     Active Substance: CLONAZEPAM
     Route: 048
     Dates: start: 20121120, end: 20121120
  14. ENOXAPARIN [Concomitant]
     Active Substance: ENOXAPARIN
     Indication: PROPHYLAXIS
     Route: 058
     Dates: start: 20121127, end: 20121127
  15. AMLODIPINE [Concomitant]
     Active Substance: AMLODIPINE BESYLATE
     Route: 048
     Dates: start: 20121127, end: 20121129
  16. BUSCOPAN COMP. [Concomitant]
     Route: 042
     Dates: start: 20121127, end: 20121208
  17. TRAMAL [Concomitant]
     Active Substance: TRAMADOL
     Route: 042
     Dates: start: 20121201, end: 20121201
  18. FLUIMUCIL [Concomitant]
     Active Substance: ACETYLCYSTEINE
     Route: 048
     Dates: start: 20121128, end: 20121221
  19. MORPHINE [Concomitant]
     Active Substance: MORPHINE
     Route: 042
     Dates: start: 20121201, end: 20121203
  20. LACTULOSE. [Concomitant]
     Active Substance: LACTULOSE
     Route: 048
     Dates: start: 20121128, end: 20121202

REACTIONS (2)
  - Neutropenia [Recovered/Resolved with Sequelae]
  - Cytokine release syndrome [Recovered/Resolved with Sequelae]

NARRATIVE: CASE EVENT DATE: 20121127
